FAERS Safety Report 21683186 (Version 1)
Quarter: 2022Q4

REPORT INFORMATION
  Report Type: Spontaneous
  Country: US (occurrence: None)
  Receive Date: 20221203
  Receipt Date: 20221203
  Transmission Date: 20230112
  Serious: Yes (Life-Threatening, Disabling)
  Sender: FDA-Public Use
  Company Number: None

PATIENT
  Age: 28 Year
  Sex: Male
  Weight: 108 kg

DRUGS (1)
  1. CLOZAPINE [Suspect]
     Active Substance: CLOZAPINE
     Indication: Schizophrenia

REACTIONS (8)
  - Product prescribing error [None]
  - Cognitive disorder [None]
  - Impaired work ability [None]
  - Psychotic disorder [None]
  - Loss of personal independence in daily activities [None]
  - Medication error [None]
  - Condition aggravated [None]
  - Suicidal ideation [None]

NARRATIVE: CASE EVENT DATE: 20220523
